FAERS Safety Report 5455429-X (Version None)
Quarter: 2007Q3

REPORT INFORMATION
  Report Type: 
  Country: None (occurrence: None)
  Receive Date: 20070918
  Receipt Date: 20070228
  Transmission Date: 20080115
  Serious: Yes (Disabling)
  Sender: FDA-Public Use
  Company Number: US-ASTRAZENECA-2006UW21735

PATIENT
  Age: 53 Year
  Sex: Male
  Weight: 96.8 kg

DRUGS (4)
  1. SEROQUEL [Suspect]
     Indication: NIGHTMARE
     Route: 048
     Dates: start: 20040101, end: 20060401
  2. RISPERDAL [Concomitant]
     Dates: start: 20040101
  3. ZYPREXA [Concomitant]
     Dates: start: 20040101, end: 20060101
  4. EFFEXOR [Concomitant]

REACTIONS (3)
  - BLOOD CHOLESTEROL INCREASED [None]
  - HYPERLIPIDAEMIA [None]
  - TARDIVE DYSKINESIA [None]
